FAERS Safety Report 14785976 (Version 1)
Quarter: 2018Q2

REPORT INFORMATION
  Report Type: Spontaneous
  Country: IT (occurrence: IT)
  Receive Date: 20180420
  Receipt Date: 20180420
  Transmission Date: 20180711
  Serious: Yes (Hospitalization, Other)
  Sender: FDA-Public Use
  Company Number: IT-MYLANLABS-2018M1025842

PATIENT
  Age: 46 Year
  Sex: Female

DRUGS (2)
  1. TAMOXIFENE                         /00388701/ [Concomitant]
     Active Substance: TAMOXIFEN
     Indication: BREAST CANCER
     Dosage: 40 MG, UNK
     Route: 048
  2. ATENOLOL. [Suspect]
     Active Substance: ATENOLOL
     Indication: ESSENTIAL HYPERTENSION
     Dosage: 200 MG, TOTAL
     Route: 048
     Dates: start: 20170129, end: 20170129

REACTIONS (3)
  - Hypotension [Recovered/Resolved]
  - Medication error [Recovered/Resolved]
  - Bradycardia [Recovered/Resolved]

NARRATIVE: CASE EVENT DATE: 20170129
